FAERS Safety Report 13607767 (Version 1)
Quarter: 2017Q2

REPORT INFORMATION
  Report Type: Spontaneous
  Country: US (occurrence: US)
  Receive Date: 20170602
  Receipt Date: 20170602
  Transmission Date: 20170830
  Serious: Yes (Other)
  Sender: FDA-Public Use
  Company Number: US-WEST-WARD PHARMACEUTICALS CORP.-US-H14001-17-01740

PATIENT
  Age: 75 Year
  Sex: Male

DRUGS (2)
  1. INFUMORPH [Suspect]
     Active Substance: MORPHINE SULFATE
     Indication: PAIN
     Route: 037
  2. SUFENTA [Suspect]
     Active Substance: SUFENTANIL CITRATE
     Indication: PAIN
     Route: 037

REACTIONS (2)
  - Catheter site pain [Unknown]
  - Catheter site granuloma [Unknown]

NARRATIVE: CASE EVENT DATE: 20170515
